FAERS Safety Report 13984799 (Version 1)
Quarter: 2017Q3

REPORT INFORMATION
  Report Type: Spontaneous
  Country: US (occurrence: US)
  Receive Date: 20170918
  Receipt Date: 20170918
  Transmission Date: 20171128
  Serious: Yes (Other)
  Sender: FDA-Public Use
  Company Number: US-MYLANLABS-2017M1056899

PATIENT
  Sex: Female

DRUGS (1)
  1. LEVETIRACETAM. [Suspect]
     Active Substance: LEVETIRACETAM
     Indication: LOSS OF CONSCIOUSNESS
     Dosage: UNK

REACTIONS (2)
  - Non-alcoholic steatohepatitis [Unknown]
  - Condition aggravated [Unknown]
